FAERS Safety Report 7080830-0 (Version None)
Quarter: 2010Q4

REPORT INFORMATION
  Report Type: 
  Country: None (occurrence: None)
  Receive Date: 20101103
  Receipt Date: 20101022
  Transmission Date: 20110411
  Serious: Yes (Other)
  Sender: FDA-Public Use
  Company Number: US-ACTELION-A-US2007-40939

PATIENT
  Sex: Female

DRUGS (3)
  1. TRACLEER [Suspect]
     Indication: PULMONARY ARTERIAL HYPERTENSION
     Route: 048
  2. CIALIS [Concomitant]
  3. FLOLAN [Concomitant]

REACTIONS (3)
  - FEMALE STERILISATION [None]
  - LIVE BIRTH [None]
  - PREGNANCY [None]
